FAERS Safety Report 8440380-3 (Version None)
Quarter: 2012Q2

REPORT INFORMATION
  Report Type: 
  Country: None (occurrence: None)
  Receive Date: 20120615
  Receipt Date: 20120605
  Transmission Date: 20120825
  Serious: Yes (Other)
  Sender: FDA-Public Use
  Company Number: US-BAYER-2012-011088

PATIENT
  Age: 27 Year
  Sex: Female
  Weight: 78.005 kg

DRUGS (10)
  1. LORATADINE [Concomitant]
     Indication: RHINITIS ALLERGIC
     Dosage: 1 TAB (TABLET) DAILY, UNK
     Dates: start: 20090311
  2. TETRACYCLINE [Concomitant]
     Indication: DERMAL CYST
     Dosage: UNK
     Dates: start: 20081201
  3. AMPHETAMINE SULFATE [Concomitant]
     Dosage: 10 MG, UNK
     Dates: start: 20090311
  4. TETRACYCLINE [Concomitant]
  5. ADDERALL XR 10 [Concomitant]
     Indication: ATTENTION DEFICIT/HYPERACTIVITY DISORDER
     Dosage: 25 MG, UNK
     Dates: start: 20060911, end: 20091011
  6. YASMIN [Suspect]
     Indication: PREMENSTRUAL SYNDROME
  7. YASMIN [Suspect]
     Indication: CONTRACEPTION
     Dosage: UNK
     Dates: start: 20080108, end: 20090219
  8. YASMIN [Suspect]
     Indication: ACNE
  9. NICOTINE [Concomitant]
     Dosage: 7 MG//24HR,APPLY ONE PATCH DAILY FOR 3-4 WEEKS UNK
     Dates: start: 20090114
  10. ASPIRIN [Concomitant]
     Dosage: UNK, DAILY

REACTIONS (11)
  - EMOTIONAL DISTRESS [None]
  - EYE PAIN [None]
  - PAIN [None]
  - RETINAL DISORDER [None]
  - INJURY [None]
  - ANXIETY [None]
  - GENERAL PHYSICAL HEALTH DETERIORATION [None]
  - DIZZINESS [None]
  - BLINDNESS UNILATERAL [None]
  - RETINAL ISCHAEMIA [None]
  - ABNORMAL SENSATION IN EYE [None]
